FAERS Safety Report 10481161 (Version 1)
Quarter: 2014Q3

REPORT INFORMATION
  Report Type: Spontaneous
  Country: US (occurrence: None)
  Receive Date: 20140908
  Receipt Date: 20140908
  Transmission Date: 20150326
  Serious: Yes (Other)
  Sender: FDA-Public Use
  Company Number: 389238

PATIENT
  Age: 66 Year
  Sex: Male
  Weight: 93 kg

DRUGS (5)
  1. METFORMIN [Concomitant]
     Active Substance: METFORMIN HYDROCHLORIDE
  2. LISINOPRIL (LISINOPRIL) [Concomitant]
     Active Substance: LISINOPRIL
  3. AMLODIPINE [Concomitant]
     Active Substance: AMLODIPINE BESYLATE
  4. VICTOZA [Suspect]
     Active Substance: LIRAGLUTIDE
     Indication: TYPE 2 DIABETES MELLITUS
     Dosage: 0.6MG PLUS TWO CLICKS OF THE PEN, SUBCUTANEOUS
     Route: 058
     Dates: start: 2010, end: 201305
  5. HUMALOG [Concomitant]
     Active Substance: INSULIN LISPRO

REACTIONS (5)
  - Ageusia [None]
  - Neck mass [None]
  - Decreased appetite [None]
  - Weight decreased [None]
  - Papillary thyroid cancer [None]

NARRATIVE: CASE EVENT DATE: 201304
